FAERS Safety Report 9701215 (Version 2)
Quarter: 2015Q3

REPORT INFORMATION
  Report Type: Spontaneous
  Country: US (occurrence: US)
  Receive Date: 20131121
  Receipt Date: 20150803
  Transmission Date: 20151125
  Serious: No
  Sender: FDA-Public Use
  Company Number: US-GILEAD-2008-0016073

PATIENT
  Age: 68 Year
  Sex: Female
  Weight: 81.65 kg

DRUGS (13)
  1. QUINAPRIL [Concomitant]
     Active Substance: QUINAPRIL\QUINAPRIL HYDROCHLORIDE
     Route: 048
  2. AMIODARONE [Concomitant]
     Active Substance: AMIODARONE
     Route: 048
  3. ARICEPT [Concomitant]
     Active Substance: DONEPEZIL HYDROCHLORIDE
     Route: 048
  4. OMEPRAZOLE. [Concomitant]
     Active Substance: OMEPRAZOLE
     Route: 048
  5. COUMADIN [Concomitant]
     Active Substance: WARFARIN SODIUM
     Route: 048
  6. REVATIO [Concomitant]
     Active Substance: SILDENAFIL CITRATE
     Route: 048
  7. IRON [Concomitant]
     Active Substance: IRON
     Route: 048
  8. LETAIRIS [Suspect]
     Active Substance: AMBRISENTAN
     Indication: PULMONARY ARTERIAL HYPERTENSION
     Route: 048
     Dates: start: 20080322
  9. PAXIL [Concomitant]
     Active Substance: PAROXETINE HYDROCHLORIDE
     Route: 048
  10. LIPITOR [Concomitant]
     Active Substance: ATORVASTATIN CALCIUM
     Route: 048
  11. JANUVIA [Concomitant]
     Active Substance: SITAGLIPTIN PHOSPHATE
     Route: 048
  12. LASIX [Concomitant]
     Active Substance: FUROSEMIDE
     Route: 048
  13. METFORMIN [Concomitant]
     Active Substance: METFORMIN HYDROCHLORIDE
     Route: 048

REACTIONS (1)
  - Tremor [Unknown]
